FAERS Safety Report 8087459 (Version 2)
Quarter: 2012Q4

REPORT INFORMATION
  Report Type: 
  Country: US (occurrence: US)
  Receive Date: 20110812
  Receipt Date: 20120921
  Transmission Date: 20130627
  Serious: Yes (Hospitalization)
  Sender: FDA-Public Use
  Company Number: US-ELI_LILLY_AND_COMPANY-US201104004747

PATIENT
  Age: 62 Year
  Sex: Female

DRUGS (2)
  1. FORTEO [Suspect]
     Indication: HYPOPARATHYROIDISM
     Dosage: 20 ug, qd
     Route: 058
     Dates: start: 20110204
  2. FORTEO [Suspect]
     Dosage: 20 ug, qd
     Route: 058
     Dates: start: 20110204

REACTIONS (8)
  - Abdominal pain upper [Unknown]
  - Hypoparathyroidism [Unknown]
  - Joint swelling [Unknown]
  - Arthralgia [Unknown]
  - Gastric disorder [Unknown]
  - Blood magnesium decreased [Unknown]
  - Off label use [Unknown]
  - Back pain [Not Recovered/Not Resolved]
